FAERS Safety Report 4567408-5 (Version None)
Quarter: 2005Q1

REPORT INFORMATION
  Report Type: 
  Country: None (occurrence: None)
  Receive Date: 20050127
  Receipt Date: 20050111
  Transmission Date: 20050727
  Serious: Yes (Hospitalization)
  Sender: FDA-Public Use
  Company Number: 9758

PATIENT
  Age: 38 Year
  Sex: Female

DRUGS (2)
  1. METHOTREXATE [Suspect]
     Indication: ABORTION INDUCED
     Dosage: 1 MG/KG TOTAL IM
     Route: 030
  2. METHOTREXATE [Suspect]
     Indication: ECTOPIC PREGNANCY
     Dosage: 1 MG/KG TOTAL IM
     Route: 030

REACTIONS (3)
  - DRUG INEFFECTIVE FOR UNAPPROVED INDICATION [None]
  - INDUCED ABORTION FAILED [None]
  - PAIN [None]
